FAERS Safety Report 16502815 (Version 1)
Quarter: 2019Q3

REPORT INFORMATION
  Report Type: Report from Study
  Country: US (occurrence: US)
  Receive Date: 20190701
  Receipt Date: 20190701
  Transmission Date: 20191004
  Serious: Yes (Hospitalization, Other)
  Sender: FDA-Public Use
  Company Number: US-MYLANLABS-2019M1059990

PATIENT

DRUGS (5)
  1. AMINOCAPROIC ACID. [Suspect]
     Active Substance: AMINOCAPROIC ACID
     Indication: PROPHYLAXIS
     Dosage: UNK
     Route: 042
  2. CYTARABINE. [Suspect]
     Active Substance: CYTARABINE
     Indication: ACUTE MYELOID LEUKAEMIA
     Dosage: ADMINISTERED WITHIN 30 DAYS PRIOR TO INITIATING AMINOCAPROIC ACID
     Route: 065
  3. DASATINIB. [Suspect]
     Active Substance: DASATINIB
     Indication: ACUTE MYELOID LEUKAEMIA
     Dosage: ADMINISTERED WITHIN 30 DAYS PRIOR TO INITIATING AMINOCAPROIC ACID
     Route: 065
  4. VITAMIN K [Suspect]
     Active Substance: PHYTONADIONE
     Indication: ADJUVANT THERAPY
     Dosage: ADMINISTERED ALONGSIDE AMINOCAPROIC ACID
     Route: 065
  5. DAUNORUBICIN [Suspect]
     Active Substance: DAUNORUBICIN
     Indication: ACUTE MYELOID LEUKAEMIA
     Dosage: ADMINISTERED WITHIN 30 DAYS PRIOR TO INITIATING AMINOCAPROIC ACID
     Route: 065

REACTIONS (1)
  - Pulmonary embolism [Unknown]
